FAERS Safety Report 7332505-8 (Version None)
Quarter: 2011Q1

REPORT INFORMATION
  Report Type: 
  Country: None (occurrence: None)
  Receive Date: 20110304
  Receipt Date: 20110228
  Transmission Date: 20110831
  Serious: Yes (Other)
  Sender: FDA-Public Use
  Company Number: DE-ABBOTT-10P-062-0687461-00

PATIENT
  Sex: Male
  Weight: 81 kg

DRUGS (14)
  1. LEUPRORELIN [Concomitant]
     Indication: PROSTATE CANCER
     Route: 058
     Dates: start: 20101211
  2. FALITHROM [Concomitant]
     Indication: PRODUCT USED FOR UNKNOWN INDICATION
  3. HUMIRA [Suspect]
     Indication: PSORIATIC ARTHROPATHY
     Route: 058
     Dates: start: 20090211, end: 20101110
  4. BICALUTAMID [Concomitant]
     Indication: PROSTATE CANCER
     Dosage: PER DAY
     Route: 048
     Dates: start: 20101111, end: 20101210
  5. PANTOPRAZOL [Concomitant]
     Indication: PRODUCT USED FOR UNKNOWN INDICATION
  6. ARCOXIA [Concomitant]
     Indication: PRODUCT USED FOR UNKNOWN INDICATION
  7. PENTAERYTHRITOL TETRANITRATE [Concomitant]
     Indication: PRODUCT USED FOR UNKNOWN INDICATION
  8. FLUXASTIN [Concomitant]
     Indication: PRODUCT USED FOR UNKNOWN INDICATION
  9. TERABLOCK [Concomitant]
     Indication: PRODUCT USED FOR UNKNOWN INDICATION
  10. CORVATON [Concomitant]
     Indication: PRODUCT USED FOR UNKNOWN INDICATION
  11. AMLODIPINE [Concomitant]
     Indication: PRODUCT USED FOR UNKNOWN INDICATION
  12. BISOPROLOL FUMARATE [Concomitant]
     Indication: PRODUCT USED FOR UNKNOWN INDICATION
  13. INSULIN [Concomitant]
     Indication: PRODUCT USED FOR UNKNOWN INDICATION
  14. DELIX [Concomitant]
     Indication: PRODUCT USED FOR UNKNOWN INDICATION

REACTIONS (1)
  - PROSTATIC SPECIFIC ANTIGEN INCREASED [None]
